FAERS Safety Report 6467746-5 (Version None)
Quarter: 2009Q4

REPORT INFORMATION
  Report Type: 
  Country: None (occurrence: None)
  Receive Date: 20091202
  Receipt Date: 20091126
  Transmission Date: 20100525
  Serious: Yes (Hospitalization, Other)
  Sender: FDA-Public Use
  Company Number: AU-NOVOPROD-301368

PATIENT
  Sex: Female

DRUGS (2)
  1. NOVOLOG [Suspect]
     Indication: GESTATIONAL DIABETES
  2. PROTAPHANE  INNOLET [Suspect]
     Indication: GESTATIONAL DIABETES

REACTIONS (1)
  - INTRA-UTERINE DEATH [None]
